FAERS Safety Report 11060772 (Version 1)
Quarter: 2015Q2

REPORT INFORMATION
  Report Type: Spontaneous
  Country: DE (occurrence: DE)
  Receive Date: 20150423
  Receipt Date: 20150423
  Transmission Date: 20150821
  Serious: Yes (Hospitalization, Other)
  Sender: FDA-Public Use
  Company Number: GXKR2015DE002100

PATIENT
  Sex: Female

DRUGS (1)
  1. BISOPROLOL 1A PHARMA [Suspect]
     Active Substance: BISOPROLOL
     Route: 048

REACTIONS (9)
  - Dizziness [Recovered/Resolved]
  - Nausea [Recovered/Resolved]
  - Loss of consciousness [Recovered/Resolved]
  - Muscular weakness [Recovered/Resolved]
  - Contusion [Recovered/Resolved]
  - Hyperhidrosis [Recovered/Resolved]
  - Fall [Recovered/Resolved]
  - Hand fracture [Recovered/Resolved with Sequelae]
  - Scratch [Recovered/Resolved]

NARRATIVE: CASE EVENT DATE: 20141209
